FAERS Safety Report 9665213 (Version 1)
Quarter: 2013Q4

REPORT INFORMATION
  Report Type: Report from Study
  Country: AR (occurrence: AR)
  Receive Date: 20131101
  Receipt Date: 20131101
  Transmission Date: 20140711
  Serious: Yes (Hospitalization)
  Sender: FDA-Public Use
  Company Number: PHHY2013AR124104

PATIENT
  Age: 48 Year
  Sex: Male

DRUGS (1)
  1. DIOVAN D [Suspect]
     Indication: HYPERTENSION
     Dosage: 1 TABLET (80/12.5 MG), DAILY
     Route: 048
     Dates: start: 20131012

REACTIONS (1)
  - Thrombophlebitis [Recovered/Resolved]
